FAERS Safety Report 5524887-4 (Version None)
Quarter: 2007Q4

REPORT INFORMATION
  Report Type: 
  Country: None (occurrence: None)
  Receive Date: 20071119
  Receipt Date: 20071105
  Transmission Date: 20080405
  Serious: Yes (Life-Threatening)
  Sender: FDA-Public Use
  Company Number: MK 6023359

PATIENT
  Age: 57 Year
  Sex: Female

DRUGS (7)
  1. WARFARIN SODIUM [Suspect]
     Indication: CLOT RETRACTION
     Dosage: ORAL
     Route: 048
     Dates: start: 20060327
  2. ENOXAPARIN (ENOXAPARTN) [Concomitant]
  3. LANSOPRAZOLE [Concomitant]
  4. AMITRIPTYLLNE (AMITRIPTYLLNE) [Concomitant]
  5. DIAMORPHINE (DIAMORPHINE) [Concomitant]
  6. MIDAZOLAM HCL [Concomitant]
  7. OMEPRAZOLE [Concomitant]

REACTIONS (4)
  - DRUG INTERACTION POTENTIATION [None]
  - HAEMOGLOBIN DECREASED [None]
  - INTERNATIONAL NORMALISED RATIO INCREASED [None]
  - MELAENA [None]
